FAERS Safety Report 6740009-6 (Version None)
Quarter: 2010Q2

REPORT INFORMATION
  Report Type: 
  Country: None (occurrence: None)
  Receive Date: 20100525
  Receipt Date: 20100519
  Transmission Date: 20101027
  Serious: Yes (Other)
  Sender: FDA-Public Use
  Company Number: CHPA2010US08649

PATIENT
  Age: 65 Year
  Sex: Female
  Weight: 54.422 kg

DRUGS (2)
  1. TRANSDERM SCOP [Suspect]
     Dosage: 1 DF, Q72H
     Route: 062
     Dates: start: 20100328, end: 20100410
  2. ADVAIR DISKUS 100/50 [Concomitant]
     Indication: ASTHMA
     Dosage: UNK, UNK
     Route: 065

REACTIONS (4)
  - APPLICATION SITE BURN [None]
  - APPLICATION SITE ERYTHEMA [None]
  - APPLICATION SITE SWELLING [None]
  - APPLICATION SITE VESICLES [None]
